FAERS Safety Report 6667458-9 (Version None)
Quarter: 2010Q2

REPORT INFORMATION
  Report Type: 
  Country: None (occurrence: None)
  Receive Date: 20100405
  Receipt Date: 20100331
  Transmission Date: 20101027
  Serious: Yes (Hospitalization)
  Sender: FDA-Public Use
  Company Number: CHPA2010US06034

PATIENT
  Age: 83 Year
  Sex: Female
  Weight: 48.98 kg

DRUGS (2)
  1. SLOW FE BROWN (NCH) [Suspect]
     Indication: ANAEMIA
     Dosage: 284 MG, QD
     Route: 048
     Dates: start: 20100326
  2. SLOW FE BROWN (NCH) [Suspect]
     Dosage: 142 M, QD
     Route: 048
     Dates: end: 20100325

REACTIONS (3)
  - ANAEMIA [None]
  - INTENTIONAL DRUG MISUSE [None]
  - OVERDOSE [None]
